FAERS Safety Report 7409443-5 (Version None)
Quarter: 2011Q2

REPORT INFORMATION
  Report Type: 
  Country: None (occurrence: None)
  Receive Date: 20110412
  Receipt Date: 20110316
  Transmission Date: 20111010
  Serious: Yes (Hospitalization, Other)
  Sender: FDA-Public Use
  Company Number: US-BAYER-201041448NA

PATIENT
  Age: 18 Year
  Sex: Female
  Weight: 90.703 kg

DRUGS (6)
  1. YAZ [Suspect]
     Indication: ACNE
     Dosage: UNK
  2. YAZ [Suspect]
     Indication: PREMENSTRUAL SYNDROME
  3. OCELLA [Suspect]
     Indication: PREMENSTRUAL SYNDROME
  4. YASMIN [Suspect]
     Indication: PREMENSTRUAL SYNDROME
  5. YASMIN [Suspect]
     Indication: ACNE
     Dosage: UNK
  6. OCELLA [Suspect]
     Indication: ACNE
     Dosage: UNK

REACTIONS (3)
  - BILIARY DYSKINESIA [None]
  - CHOLECYSTITIS CHRONIC [None]
  - GALLBLADDER DISORDER [None]
